FAERS Safety Report 9447887 (Version 1)
Quarter: 2013Q3

REPORT INFORMATION
  Report Type: Spontaneous
  Country: US (occurrence: None)
  Receive Date: 20130807
  Receipt Date: 20130807
  Transmission Date: 20140515
  Serious: Yes (Other)
  Sender: FDA-Public Use
  Company Number: None

PATIENT
  Age: 44 Year
  Sex: Female
  Weight: 95.26 kg

DRUGS (1)
  1. WELLBUTRIN [Suspect]
     Indication: ANXIETY
     Dosage: 100MG ONCE DAILY TAKEN BY MOUTH
     Route: 048

REACTIONS (5)
  - Palpitations [None]
  - Ventricular extrasystoles [None]
  - Extrasystoles [None]
  - Extrasystoles [None]
  - Chest pain [None]
